FAERS Safety Report 19978624 (Version 1)
Quarter: 2021Q4

REPORT INFORMATION
  Report Type: Spontaneous
  Country: US (occurrence: US)
  Receive Date: 20211020
  Receipt Date: 20211020
  Transmission Date: 20220303
  Serious: Yes (Death)
  Sender: FDA-Public Use
  Company Number: None

PATIENT
  Age: 9 Year
  Sex: Male

DRUGS (6)
  1. EPIDIOLEX [Suspect]
     Active Substance: CANNABIDIOL
     Dosage: ?          OTHER ROUTE:GTUBE
  2. CUVPOSA [Concomitant]
     Active Substance: GLYCOPYRROLATE
  3. LANSOPRAZOLE [Concomitant]
     Active Substance: LANSOPRAZOLE
  4. OZOBAX [Concomitant]
     Active Substance: BACLOFEN
  5. SILACE [Concomitant]
     Active Substance: DOCUSATE SODIUM
  6. EPIDIOLEX [Concomitant]
     Active Substance: CANNABIDIOL

REACTIONS (1)
  - Death [None]
